FAERS Safety Report 4888153-2 (Version None)
Quarter: 2006Q1

REPORT INFORMATION
  Report Type: 
  Country: None (occurrence: None)
  Receive Date: 20060123
  Receipt Date: 20041014
  Transmission Date: 20060701
  Serious: Yes (Hospitalization)
  Sender: FDA-Public Use
  Company Number: FR-GILEAD-2004-0007622

PATIENT
  Age: 42 Year
  Sex: Male
  Weight: 69 kg

DRUGS (10)
  1. VIREAD [Suspect]
     Indication: HIV INFECTION
     Route: 048
     Dates: start: 20030501, end: 20040901
  2. VIDEX [Concomitant]
     Indication: HIV INFECTION
     Route: 048
     Dates: start: 20030501
  3. KALETRA [Concomitant]
     Indication: HIV INFECTION
     Route: 048
     Dates: start: 20030501
  4. PROZAC [Concomitant]
     Indication: DEPRESSION
     Route: 048
  5. ZYPREXA [Concomitant]
     Indication: PSYCHIATRIC SYMPTOM
     Route: 048
  6. LIPANTHYL [Concomitant]
     Indication: DYSLIPIDAEMIA
     Route: 048
  7. DEPAKOTE [Concomitant]
     Route: 048
  8. CLOPIXOL [Concomitant]
     Route: 048
  9. ORACILLINE [Concomitant]
  10. DIANTALVIC [Concomitant]
     Route: 048

REACTIONS (19)
  - ANOREXIA [None]
  - ARTHRALGIA [None]
  - ASTHENIA [None]
  - BEDRIDDEN [None]
  - BLOOD GLUCOSE INCREASED [None]
  - DEHYDRATION [None]
  - FANCONI SYNDROME ACQUIRED [None]
  - GENERAL PHYSICAL HEALTH DETERIORATION [None]
  - HAEMATURIA [None]
  - HYPOPHOSPHATAEMIA [None]
  - NEPHROGENIC DIABETES INSIPIDUS [None]
  - OSTEOMALACIA [None]
  - PAIN IN EXTREMITY [None]
  - RENAL FAILURE [None]
  - RENAL TUBULAR DISORDER [None]
  - SHOULDER PAIN [None]
  - URINE ANALYSIS ABNORMAL [None]
  - WALKING AID USER [None]
  - WEIGHT DECREASED [None]
